FAERS Safety Report 6382223-8 (Version None)
Quarter: 2009Q3

REPORT INFORMATION
  Report Type: 
  Country: None (occurrence: None)
  Receive Date: 20090925
  Receipt Date: 20090917
  Transmission Date: 20100115
  Serious: Yes (Death)
  Sender: FDA-Public Use
  Company Number: 87461

PATIENT
  Age: 60 Year
  Sex: Male

DRUGS (1)
  1. LEUCOVORIN CALCIUM FOR INJ. [Suspect]
     Indication: COLORECTAL CANCER METASTATIC
     Dosage: 851MG
     Dates: start: 20090519, end: 20090902

REACTIONS (1)
  - DEATH [None]
